FAERS Safety Report 5849595-1 (Version None)
Quarter: 2008Q3

REPORT INFORMATION
  Report Type: 
  Country: None (occurrence: None)
  Receive Date: 20080819
  Receipt Date: 20080808
  Transmission Date: 20090109
  Serious: Yes (Hospitalization)
  Sender: FDA-Public Use
  Company Number: US-ROCHE-580078

PATIENT
  Age: 17 Year
  Sex: Female

DRUGS (6)
  1. DIAZEPAM [Suspect]
     Route: 065
  2. DIAZEPAM [Suspect]
     Dosage: TAPERED DOSE
     Route: 065
  3. CLONIDINE [Concomitant]
  4. PAROXETINE HCL [Concomitant]
  5. LAMOTRIGINE [Concomitant]
     Dosage: DRUG REPORTED AS LAMATRIGINE
  6. MULTI-VITAMIN [Concomitant]

REACTIONS (1)
  - AFFECTIVE DISORDER [None]
